FAERS Safety Report 4320635-4 (Version None)
Quarter: 2004Q1

REPORT INFORMATION
  Report Type: 
  Country: None (occurrence: None)
  Receive Date: 20040322
  Receipt Date: 20040310
  Transmission Date: 20041129
  Serious: Yes (Disabling)
  Sender: FDA-Public Use
  Company Number: US-BRISTOL-MYERS SQUIBB COMPANY-12529301

PATIENT
  Age: 26 Year
  Sex: Male
  Weight: 100 kg

DRUGS (3)
  1. BLENOXANE [Suspect]
     Indication: SKIN PAPILLOMA
     Dosage: ^MULTIPLE^ SUBCUTANEOUS INJECTIONS AT 0.01 ML OR DOUBLE THAT DOSE
     Route: 058
     Dates: start: 20010118, end: 20021104
  2. BACTROBAN [Concomitant]
  3. DIPROLENE [Concomitant]

REACTIONS (3)
  - EPITHELIOID SARCOMA [None]
  - INJECTION SITE NECROSIS [None]
  - POST PROCEDURAL HAEMORRHAGE [None]
